FAERS Safety Report 24112860 (Version 3)
Quarter: 2024Q3

REPORT INFORMATION
  Report Type: Report from Study
  Country: US (occurrence: US)
  Receive Date: 20240719
  Receipt Date: 20240829
  Transmission Date: 20241017
  Serious: Yes (Hospitalization)
  Sender: ALNYLAM PHARMACEUTICALS
  Company Number: US-ALNYLAM PHARMACEUTICALS, INC.-ALN-2024-003940

PATIENT

DRUGS (14)
  1. GIVLAARI [Suspect]
     Active Substance: GIVOSIRAN SODIUM
     Indication: Porphyria acute
     Dosage: 1.052 MILLIGRAM, MONTHLY
     Route: 058
     Dates: start: 20230126, end: 20230126
  2. GIVLAARI [Suspect]
     Active Substance: GIVOSIRAN SODIUM
     Dosage: 1.052 MILLIGRAM, MONTHLY (2.5 MILLIGRAM/KILOGRAM LIMIT TO ONE VIAL)
     Route: 058
     Dates: start: 20240612, end: 20240612
  3. HYDROMORPHONE [Concomitant]
     Active Substance: HYDROMORPHONE
     Indication: Pain
     Dosage: 2 MILLIGRAM, BID (TAKE 1 TABLET BY MOUTH IN THE MORNING AND 1 TABLE THE EVENING)
     Route: 048
  4. AMBIEN [Concomitant]
     Active Substance: ZOLPIDEM TARTRATE
     Indication: Insomnia
     Dosage: 5 MILLIGRAM, QD (TAKE 1 TABLET BY MOUTH AT BEDTIME AS NEEDED)
     Route: 048
  5. ASPIRIN [Concomitant]
     Active Substance: ASPIRIN
     Indication: Product used for unknown indication
     Dosage: 81 MILLIGRAM, QD (TAKE 1 TABLET BY MOUTH IN THE MORNING)
     Route: 048
  6. DIPHENHYDRAMINE [Concomitant]
     Active Substance: DIPHENHYDRAMINE
     Indication: Pruritus
     Dosage: 25 MILLIGRAM, Q4H (TAKE 2 TABLETS BY MOUTH EVERY 4 (FOUR) HOURS AS NEEDED)
     Route: 048
  7. NARCAN [Concomitant]
     Active Substance: NALOXONE HYDROCHLORIDE
     Indication: Overdose
     Dosage: 4 MILLIGRAM, PRN (USE 1 SPRAY IN EACH NOSTRIL AS NEEDED)
     Route: 045
  8. TRAZODONE [Concomitant]
     Active Substance: TRAZODONE HYDROCHLORIDE
     Indication: Product used for unknown indication
     Dosage: 150 MILLIGRAM, QD (TAKE 1 TABLET BY MOUTH AT BEDTIME)
     Route: 048
  9. PROMETHAZINE [Concomitant]
     Active Substance: PROMETHAZINE HYDROCHLORIDE
     Indication: Nausea
     Dosage: 25 MILLIGRAM, Q6H (TAKE 1 TABLET BY MOUTH EVERY 6 (SIX) HOURS AS NEED)
     Route: 048
  10. PROMETHAZINE [Concomitant]
     Active Substance: PROMETHAZINE HYDROCHLORIDE
     Indication: Vomiting
  11. ATORVASTATIN [Concomitant]
     Active Substance: ATORVASTATIN
     Indication: Product used for unknown indication
     Dosage: 40 MILLIGRAM, QD (TAKE 1 TABLET BY MOUTH AT BEDTIME)
     Route: 048
  12. ACETAMINOPHEN [Concomitant]
     Active Substance: ACETAMINOPHEN
     Indication: Product used for unknown indication
     Dosage: 500 MILLIGRAM, QD (TAKE 1 TABLET BY MOUTH)
     Route: 048
  13. ESCITALOPRAM OXALATE [Concomitant]
     Active Substance: ESCITALOPRAM OXALATE
     Indication: Product used for unknown indication
     Dosage: 20 MILLIGRAM, QD (TAKE 1 TABLET BY MOUTH IN THE MORNING)
     Route: 048
  14. OMEPRAZOLE [Concomitant]
     Active Substance: OMEPRAZOLE
     Indication: Product used for unknown indication
     Dosage: 40 MILLIGRAM, QD (TAKE 1 CAPSULE BY MOUTH IN THE MORNING)
     Route: 048

REACTIONS (5)
  - Porphyria acute [Unknown]
  - Pain [Unknown]
  - Therapy interrupted [Recovered/Resolved]
  - Amenorrhoea [Unknown]
  - Muscle spasms [Unknown]

NARRATIVE: CASE EVENT DATE: 20240601
